FAERS Safety Report 8289267-X (Version None)
Quarter: 2012Q2

REPORT INFORMATION
  Report Type: 
  Country: None (occurrence: None)
  Receive Date: 20120417
  Receipt Date: 20120412
  Transmission Date: 20120825
  Serious: Yes (Hospitalization, Disabling, Other)
  Sender: FDA-Public Use
  Company Number: PHEH2009US04653

PATIENT
  Sex: Female

DRUGS (33)
  1. ATENOLOL [Concomitant]
     Indication: HYPERTENSION
  2. LEVAQUIN [Concomitant]
     Dosage: 500 MG ONE DAILY
  3. KEFLEX [Concomitant]
     Dosage: 500 MG, UNK
  4. DEXAMETHASONE [Concomitant]
     Dosage: 10 MG, UNK
     Route: 042
  5. CHEMOTHERAPEUTICS NOS [Suspect]
  6. COLCHICINE [Concomitant]
     Dosage: 0.6 MG,
     Route: 048
  7. ERGOCALCIFEROL [Concomitant]
  8. PAROXETINE [Concomitant]
  9. XELODA [Concomitant]
  10. ZOCOR [Concomitant]
  11. ACETAMINOPHEN [Concomitant]
  12. BENICAR [Concomitant]
     Route: 048
  13. ZOLOFT [Concomitant]
     Dosage: 50 MG, QD
     Route: 048
  14. PERCOCET [Concomitant]
     Dosage: 5 MG, UNK
  15. LIPITOR [Concomitant]
     Dosage: 10 MG, QD
     Route: 048
  16. TRICOR [Concomitant]
     Dosage: 145 MG, QD
     Route: 048
  17. GLUCOPHAGE [Concomitant]
     Indication: DIABETES MELLITUS
  18. INSULIN [Concomitant]
     Indication: DIABETES MELLITUS
  19. LASIX [Concomitant]
  20. ALLOPURINOL [Concomitant]
     Dosage: 100 MG, QOD
     Route: 048
  21. HUMALOG [Concomitant]
  22. DOCETAXEL [Concomitant]
  23. PROAIR HFA (ALBUTEROL SULFATE) INHALATION AEROSOL [Concomitant]
     Dosage: 90 MCG
  24. AMOXICILLIN [Concomitant]
     Dosage: 500 MG, UNK
  25. AREDIA [Suspect]
     Route: 042
     Dates: start: 20021201, end: 20080501
  26. NOVOLOG [Concomitant]
     Dosage: 25 U, TID
  27. HEPARIN [Concomitant]
  28. FASLODEX [Concomitant]
  29. MAGNESIUM OXIDE [Concomitant]
     Dosage: 400 MG, BID
     Route: 048
  30. SYNTHROID [Concomitant]
     Route: 048
  31. ALPRAZOLAM [Concomitant]
     Dosage: 0.25 MG, PRN
  32. TAXOTERE [Concomitant]
  33. ARANESP [Concomitant]

REACTIONS (70)
  - PAIN [None]
  - EXPOSED BONE IN JAW [None]
  - UPPER RESPIRATORY TRACT INFECTION [None]
  - WEIGHT DECREASED [None]
  - OEDEMA PERIPHERAL [None]
  - FATIGUE [None]
  - GASTROENTERITIS VIRAL [None]
  - CHRONIC OBSTRUCTIVE PULMONARY DISEASE [None]
  - SPLENIC GRANULOMA [None]
  - ARTHRALGIA [None]
  - HEADACHE [None]
  - INJURY [None]
  - CARDIOMEGALY [None]
  - METASTASES TO BONE [None]
  - HYPERCHOLESTEROLAEMIA [None]
  - LUNG DISORDER [None]
  - GRANULOMA [None]
  - SLEEP APNOEA SYNDROME [None]
  - TOOTH LOSS [None]
  - DIABETIC KETOACIDOSIS [None]
  - BONE PAIN [None]
  - HYPOTHYROIDISM [None]
  - ASTHMA [None]
  - HYPOCALCAEMIA [None]
  - NEURODERMATITIS [None]
  - AUTOIMMUNE THYROIDITIS [None]
  - ABDOMINAL NEOPLASM [None]
  - CATARACT [None]
  - TRANSIENT ISCHAEMIC ATTACK [None]
  - UMBILICAL HERNIA [None]
  - HILAR LYMPHADENOPATHY [None]
  - LYMPHOEDEMA [None]
  - ONYCHOLYSIS [None]
  - CONFUSIONAL STATE [None]
  - OSTEONECROSIS OF JAW [None]
  - HYPOGLYCAEMIA [None]
  - OSTEOPOROSIS [None]
  - ANXIETY [None]
  - CHOLELITHIASIS [None]
  - CHRONIC SINUSITIS [None]
  - HEPATIC STEATOSIS [None]
  - DEHYDRATION [None]
  - VOMITING [None]
  - PALMAR-PLANTAR ERYTHRODYSAESTHESIA SYNDROME [None]
  - DYSPNOEA EXERTIONAL [None]
  - OSTEOARTHRITIS [None]
  - DRUG HYPERSENSITIVITY [None]
  - PRIMARY SEQUESTRUM [None]
  - HYPOKALAEMIA [None]
  - GOUT [None]
  - RASH [None]
  - CARDIAC DISORDER [None]
  - PHYSICAL DISABILITY [None]
  - DYSPNOEA [None]
  - OSTEOMYELITIS [None]
  - ASCITES [None]
  - OBESITY [None]
  - METASTASES TO SKIN [None]
  - PYREXIA [None]
  - MYALGIA [None]
  - NEPHROPATHY [None]
  - HYPOAESTHESIA [None]
  - PURULENT DISCHARGE [None]
  - JAW FRACTURE [None]
  - HYPOMAGNESAEMIA [None]
  - METASTASES TO LUNG [None]
  - NAUSEA [None]
  - ANAEMIA [None]
  - REVERSIBLE ISCHAEMIC NEUROLOGICAL DEFICIT [None]
  - CEREBROVASCULAR DISORDER [None]
